FAERS Safety Report 15788931 (Version 1)
Quarter: 2019Q1

REPORT INFORMATION
  Report Type: Report from Study
  Country: None (occurrence: US)
  Receive Date: 20190104
  Receipt Date: 20190104
  Transmission Date: 20190417
  Serious: Yes (Other)
  Sender: FDA-Public Use
  Company Number: US-INGENUS PHARMACEUTICALS, LLC-INF201812-001211

PATIENT
  Age: 25 Month
  Sex: Male

DRUGS (4)
  1. CARBOPLATIN. [Suspect]
     Active Substance: CARBOPLATIN
     Indication: RETINOBLASTOMA
  2. NITROUS OXIDE. [Concomitant]
     Active Substance: NITROUS OXIDE
     Dosage: 58 MIN OF NITROUS OXIDE WITH MAX ET N2O 31.9% DURING THE SECOND SESSION
  3. HEPARIN [Concomitant]
     Active Substance: HEPARIN SODIUM
  4. MELPHALAN. [Suspect]
     Active Substance: MELPHALAN
     Indication: RETINOBLASTOMA

REACTIONS (1)
  - Choroidal infarction [Unknown]
